FAERS Safety Report 5270877-9 (Version None)
Quarter: 2007Q1

REPORT INFORMATION
  Report Type: 
  Country: None (occurrence: None)
  Receive Date: 20070315
  Receipt Date: 20070302
  Transmission Date: 20070707
  Serious: Yes (Other)
  Sender: FDA-Public Use
  Company Number: 2007S1000075

PATIENT
  Age: 42 Year
  Sex: Male
  Weight: 94 kg

DRUGS (9)
  1. CUBICIN [Suspect]
     Dosage: 350 MG; Q24H; IV
     Route: 042
     Dates: start: 20061123, end: 20070105
  2. CEFTAZIDIME [Concomitant]
  3. RIFAMPICIN [Concomitant]
  4. TEICOPLANIN [Concomitant]
  5. PIPERACILLIN [Concomitant]
  6. COMBACTAM [Concomitant]
  7. GENTAMYCIN-MP [Concomitant]
  8. MEROPENEM [Concomitant]
  9. VANCOMYCIN [Concomitant]

REACTIONS (1)
  - NEUROPATHY PERIPHERAL [None]
